FAERS Safety Report 15778553 (Version 4)
Quarter: 2019Q3

REPORT INFORMATION
  Report Type: Report from Study
  Country: US (occurrence: US)
  Receive Date: 20181231
  Receipt Date: 20190910
  Transmission Date: 20191004
  Serious: Yes (Hospitalization)
  Sender: FDA-Public Use
  Company Number: US-ACTELION-A-NJ2018-184213

PATIENT
  Age: 52 Year
  Sex: Female
  Weight: 60.77 kg

DRUGS (2)
  1. LETAIRIS [Concomitant]
     Active Substance: AMBRISENTAN
  2. VELETRI [Suspect]
     Active Substance: EPOPROSTENOL
     Indication: PULMONARY ARTERIAL HYPERTENSION
     Dosage: 39 NG/KG, PER MIN
     Route: 042
     Dates: start: 20190204

REACTIONS (5)
  - Meningitis streptococcal [Unknown]
  - Meningitis bacterial [Unknown]
  - Surgery [Unknown]
  - Flushing [Unknown]
  - Pain in jaw [Unknown]

NARRATIVE: CASE EVENT DATE: 20190627
